FAERS Safety Report 5362641-7 (Version None)
Quarter: 2007Q2

REPORT INFORMATION
  Report Type: 
  Country: None (occurrence: None)
  Receive Date: 20070619
  Receipt Date: 20070607
  Transmission Date: 20071010
  Serious: Yes (Death, Other)
  Sender: FDA-Public Use
  Company Number: GB-PFIZER INC-2007022665

PATIENT
  Age: 30 Month
  Sex: Male

DRUGS (7)
  1. EPIRUBICIN HYDROCHLORIDE [Suspect]
     Indication: RHABDOMYOSARCOMA
     Dosage: DAILY DOSE:150MG/M*2
  2. CARBOPLATIN [Suspect]
     Indication: RHABDOMYOSARCOMA
  3. VINCRISTINE SULFATE [Suspect]
     Indication: RHABDOMYOSARCOMA
  4. ETOPOSIDE [Suspect]
     Indication: RHABDOMYOSARCOMA
  5. IFOSFAMIDE [Suspect]
     Indication: RHABDOMYOSARCOMA
  6. DACTINOMYCIN [Suspect]
     Indication: RHABDOMYOSARCOMA
  7. CHEMOTHERAPY NOS [Concomitant]

REACTIONS (5)
  - FEBRILE NEUTROPENIA [None]
  - INTERSTITIAL LUNG DISEASE [None]
  - OTOTOXICITY [None]
  - RECALL PHENOMENON [None]
  - RESPIRATORY FAILURE [None]
